FAERS Safety Report 18571034 (Version 2)
Quarter: 2021Q4

REPORT INFORMATION
  Report Type: Spontaneous
  Country: US (occurrence: US)
  Receive Date: 20201202
  Receipt Date: 20211217
  Transmission Date: 20220303
  Serious: No
  Sender: FDA-Public Use
  Company Number: US-NOVEN PHARMACEUTICALS, INC.-2020US004280

PATIENT
  Sex: Female
  Weight: 63.946 kg

DRUGS (1)
  1. ESTRADIOL [Suspect]
     Active Substance: ESTRADIOL
     Indication: Hysterectomy
     Dosage: 0.075 MG, UNK
     Route: 062
     Dates: start: 2019

REACTIONS (5)
  - Personality change [Unknown]
  - Drug hypersensitivity [Unknown]
  - Hot flush [Unknown]
  - Mood swings [Unknown]
  - Therapeutic product ineffective [Unknown]
